FAERS Safety Report 23041215 (Version 3)
Quarter: 2023Q4

REPORT INFORMATION
  Report Type: Report from Study
  Country: US (occurrence: US)
  Receive Date: 20231007
  Receipt Date: 20231228
  Transmission Date: 20240109
  Serious: No
  Sender: FDA-Public Use
  Company Number: US-002147023-NVSC2023US216304

PATIENT
  Age: 40 Year
  Sex: Female

DRUGS (2)
  1. COSENTYX [Suspect]
     Active Substance: SECUKINUMAB
     Indication: Psoriasis
     Dosage: 300 MG/KG, QW
     Route: 058
     Dates: start: 20230905
  2. COSENTYX [Suspect]
     Active Substance: SECUKINUMAB
     Indication: Hidradenitis
     Dosage: 300 MG, QMO
     Route: 058

REACTIONS (13)
  - Product dose omission issue [Unknown]
  - Product prescribing issue [Unknown]
  - Drug ineffective [Unknown]
  - Pain [Unknown]
  - Psoriasis [Recovering/Resolving]
  - Decreased appetite [Unknown]
  - Nausea [Unknown]
  - Carbuncle [Unknown]
  - Hidradenitis [Unknown]
  - Scar [Unknown]
  - Pruritus [Unknown]
  - Pustule [Unknown]
  - Erythema [Unknown]

NARRATIVE: CASE EVENT DATE: 20231002
